FAERS Safety Report 18624629 (Version 12)
Quarter: 2022Q1

REPORT INFORMATION
  Report Type: Spontaneous
  Country: FR (occurrence: FR)
  Receive Date: 20201216
  Receipt Date: 20220202
  Transmission Date: 20220423
  Serious: Yes (Life-Threatening, Other)
  Sender: FDA-Public Use
  Company Number: FR-CELGENE-FRA-20201203016

PATIENT
  Age: 70 Year
  Sex: Female

DRUGS (6)
  1. AZACITIDINE [Suspect]
     Active Substance: AZACITIDINE
     Indication: Acute myeloid leukaemia
     Dosage: 75 MILLIGRAM/SQ. METER
     Route: 065
     Dates: start: 20201126
  2. VENETOCLAX [Suspect]
     Active Substance: VENETOCLAX
     Indication: Acute myeloid leukaemia
     Route: 065
     Dates: start: 20201126
  3. PEVONEDISTAT [Suspect]
     Active Substance: PEVONEDISTAT
     Indication: Acute myeloid leukaemia
     Route: 065
     Dates: start: 20201126
  4. FUROSEMIDE [Concomitant]
     Active Substance: FUROSEMIDE
     Indication: Dermo-hypodermitis
     Route: 065
     Dates: start: 20201128, end: 20201207
  5. AMLODIPINE BESYLATE [Concomitant]
     Active Substance: AMLODIPINE BESYLATE
     Indication: Hypertension
     Route: 065
  6. Lenezoline [Concomitant]
     Indication: Product used for unknown indication
     Route: 065

REACTIONS (2)
  - Respiratory distress [Not Recovered/Not Resolved]
  - Sepsis [Not Recovered/Not Resolved]

NARRATIVE: CASE EVENT DATE: 20201129
